FAERS Safety Report 25831929 (Version 1)
Quarter: 2025Q3

REPORT INFORMATION
  Report Type: Spontaneous
  Country: US (occurrence: US)
  Receive Date: 20250922
  Receipt Date: 20250922
  Transmission Date: 20251020
  Serious: Yes (Other)
  Sender: GLAXOSMITHKLINE
  Company Number: US-GLAXOSMITHKLINE INC-US2025AMR116374

PATIENT
  Sex: Female

DRUGS (3)
  1. BENLYSTA [Suspect]
     Active Substance: BELIMUMAB
     Indication: Systemic lupus erythematosus
     Dosage: 400 MG, WE INJECT 2 PENS UNDER THE SKIN EVERY 7 DAYS FOR 4 WEEKS, THEN 1 PEN EVERY 7 DAYS THEREAFTER.
  2. BENLYSTA [Suspect]
     Active Substance: BELIMUMAB
     Dosage: 1 DF, WE
  3. MYFORTIC [Concomitant]
     Active Substance: MYCOPHENOLATE SODIUM
     Indication: Product used for unknown indication

REACTIONS (2)
  - Systemic lupus erythematosus [Not Recovered/Not Resolved]
  - Extra dose administered [Unknown]
